FAERS Safety Report 8284352-0 (Version None)
Quarter: 2012Q2

REPORT INFORMATION
  Report Type: 
  Country: None (occurrence: None)
  Receive Date: 20120413
  Receipt Date: 20110428
  Transmission Date: 20120825
  Serious: No
  Sender: FDA-Public Use
  Company Number: US-ASTRAZENECA-2011SE25355

PATIENT
  Age: 49 Year
  Sex: Female
  Weight: 73 kg

DRUGS (23)
  1. ELMIRON [Concomitant]
  2. PLAQUENIL [Concomitant]
  3. RISPERDAL [Concomitant]
  4. SAMVIR [Concomitant]
  5. SAVELLA [Concomitant]
  6. LIDODERM [Concomitant]
  7. ZANAFLEX [Concomitant]
  8. TRICOR [Concomitant]
  9. VESICARE [Concomitant]
  10. CRESTOR [Concomitant]
     Route: 048
  11. CYMBALTA [Concomitant]
  12. ZOMIG [Concomitant]
  13. URIBEL [Concomitant]
  14. ULTRAM [Concomitant]
  15. LYRICA [Concomitant]
  16. ROBAXIN [Concomitant]
  17. SINGULAIR [Concomitant]
  18. NEXIUM [Suspect]
     Indication: HIATUS HERNIA
     Route: 048
     Dates: start: 20000101
  19. DICYCLOMINE [Concomitant]
  20. ENJUVIA MIDODRINE [Concomitant]
  21. ATENOLOL [Concomitant]
  22. CELEBREX [Concomitant]
  23. TRAZODONE HCL [Concomitant]

REACTIONS (1)
  - OSTEOPOROSIS [None]
